FAERS Safety Report 4570457-4 (Version None)
Quarter: 2005Q1

REPORT INFORMATION
  Report Type: 
  Country: None (occurrence: None)
  Receive Date: 20050204
  Receipt Date: 20050126
  Transmission Date: 20050727
  Serious: Yes (Other)
  Sender: FDA-Public Use
  Company Number: ES-JNJFOC-20041105844

PATIENT
  Sex: Male

DRUGS (3)
  1. RISPERDAL [Suspect]
     Route: 049
  2. AKINETON [Concomitant]
     Indication: EXTRAPYRAMIDAL DISORDER
     Route: 049
  3. ORFIDAL [Concomitant]
     Indication: ANXIETY
     Route: 049

REACTIONS (2)
  - DYSTONIA [None]
  - THROMBOCYTOPENIA [None]
